FAERS Safety Report 5531216-9 (Version None)
Quarter: 2007Q4

REPORT INFORMATION
  Report Type: 
  Country: None (occurrence: None)
  Receive Date: 20071130
  Receipt Date: 20071122
  Transmission Date: 20080405
  Serious: Yes (Hospitalization)
  Sender: FDA-Public Use
  Company Number: FR-MERCK-0706FRA00076

PATIENT
  Age: 84 Year
  Sex: Female

DRUGS (3)
  1. TIMOPTIC-XE [Suspect]
     Indication: GLAUCOMA
     Route: 047
     Dates: start: 20050101
  2. VITAMINS (UNSPECIFIED) [Concomitant]
     Route: 048
  3. HOMEOPATHIC MEDICATIONS (UNSPECIFIED) [Concomitant]
     Route: 048

REACTIONS (2)
  - ANXIETY [None]
  - ATRIAL FIBRILLATION [None]
